FAERS Safety Report 8717439 (Version 2)
Quarter: 2012Q4

REPORT INFORMATION
  Report Type: 
  Country: BR (occurrence: BR)
  Receive Date: 20120810
  Receipt Date: 20120925
  Transmission Date: 20130627
  Serious: Yes (Hospitalization)
  Sender: FDA-Public Use
  Company Number: BR-ELI_LILLY_AND_COMPANY-BR201208001846

PATIENT
  Sex: Female
  Weight: 63 kg

DRUGS (9)
  1. HUMULIN NPH [Suspect]
     Indication: TYPE 2 DIABETES MELLITUS
     Dosage: 26 IU, each morning
     Route: 058
     Dates: start: 201201
  2. HUMULIN NPH [Suspect]
     Dosage: 24 IU, other
     Route: 058
     Dates: start: 201201
  3. HUMULIN NPH [Suspect]
     Dosage: 20 IU, each evening
     Route: 058
     Dates: start: 201201
  4. HUMULIN REGULAR [Suspect]
     Indication: TYPE 2 DIABETES MELLITUS
     Dosage: UNK, unknown
     Route: 058
     Dates: start: 2011
  5. HUMALOG LISPRO [Suspect]
     Indication: TYPE 2 DIABETES MELLITUS
     Dosage: UNK, unknown
     Route: 058
     Dates: start: 2012
  6. AMLODIPINE BESILATE [Concomitant]
     Dosage: 5 mg, bid
     Route: 065
  7. AMLODIPINE BESILATE [Concomitant]
     Dosage: 5 mg, qd
     Route: 065
  8. HYDROCHLOORTHIAZIDE [Concomitant]
     Indication: FLUID RETENTION
     Dosage: 50 mg, qd
     Route: 065
  9. ROSUVASTATIN [Concomitant]
     Indication: BLOOD CHOLESTEROL
     Dosage: 10 mg, unknown
     Route: 065

REACTIONS (8)
  - Arrhythmia [Recovering/Resolving]
  - Blood glucose abnormal [Recovered/Resolved]
  - Blood glucose increased [Recovered/Resolved]
  - Injection site pain [Unknown]
  - Malaise [Unknown]
  - Fatigue [Unknown]
  - Dyspnoea [Unknown]
  - Blood pressure decreased [Unknown]
